FAERS Safety Report 18258720 (Version 1)
Quarter: 2020Q3

REPORT INFORMATION
  Report Type: Spontaneous
  Country: US (occurrence: US)
  Receive Date: 20200911
  Receipt Date: 20200911
  Transmission Date: 20201103
  Serious: No
  Sender: FDA-Public Use
  Company Number: US-AMNEAL PHARMACEUTICALS-2020-AMRX-00253

PATIENT
  Sex: Male
  Weight: 102 kg

DRUGS (7)
  1. VALACICLOVIR [Concomitant]
     Active Substance: VALACYCLOVIR HYDROCHLORIDE
     Indication: PRODUCT USED FOR UNKNOWN INDICATION
     Dosage: 500 MILLIGRAM, 1 /DAY
     Route: 065
  2. MORPHINE [Concomitant]
     Active Substance: MORPHINE
     Dosage: 20 MILLIGRAM, 2?3 WEEKLY
     Route: 065
     Dates: start: 201910
  3. MORPHINE [Concomitant]
     Active Substance: MORPHINE
     Indication: NEUROPATHY PERIPHERAL
     Dosage: 20 MILLIGRAM, BID (ONE IN THE MORNING AND ONE AT NIGHT )
     Route: 065
  4. AMITRIPTYLINE [Concomitant]
     Active Substance: AMITRIPTYLINE
     Indication: PRODUCT USED FOR UNKNOWN INDICATION
     Dosage: 100 MILLIGRAM, BEDTIME
     Route: 065
  5. GABAPENTIN. [Suspect]
     Active Substance: GABAPENTIN
     Indication: PRODUCT USED FOR UNKNOWN INDICATION
     Dosage: 300 MILLIGRAM, 2 CAPSULES, BEDTIME
     Route: 065
     Dates: start: 20191003
  6. BIKTARVY [Concomitant]
     Active Substance: BICTEGRAVIR SODIUM\EMTRICITABINE\TENOFOVIR ALAFENAMIDE FUMARATE
     Indication: PRODUCT USED FOR UNKNOWN INDICATION
     Dosage: UNK
     Route: 065
  7. FAMOTIDINE. [Concomitant]
     Active Substance: FAMOTIDINE
     Indication: PRODUCT USED FOR UNKNOWN INDICATION
     Dosage: 20 MILLIGRAM, BID
     Route: 065

REACTIONS (2)
  - Diarrhoea [Unknown]
  - Drug ineffective [Unknown]
